FAERS Safety Report 4774024-9 (Version None)
Quarter: 2005Q3

REPORT INFORMATION
  Report Type: 
  Country: None (occurrence: None)
  Receive Date: 20050919
  Receipt Date: 20050914
  Transmission Date: 20060218
  Serious: Yes (Hospitalization, Other)
  Sender: FDA-Public Use
  Company Number: NLWYE976714SEP05

PATIENT
  Sex: Male

DRUGS (2)
  1. EFFEXOR XR [Suspect]
     Indication: DEPRESSION
     Dosage: 75 MG 1X PER 1 DAY  ORAL : 150 MG 1X PER 1 DAY
     Route: 048
     Dates: start: 20050201, end: 20050101
  2. EFFEXOR XR [Suspect]
     Indication: DEPRESSION
     Dosage: 75 MG 1X PER 1 DAY  ORAL : 150 MG 1X PER 1 DAY
     Route: 048
     Dates: start: 20050101, end: 20050201

REACTIONS (3)
  - ALCOHOL USE [None]
  - BIPOLAR I DISORDER [None]
  - DRUG WITHDRAWAL SYNDROME [None]
